FAERS Safety Report 23654099 (Version 2)
Quarter: 2024Q2

REPORT INFORMATION
  Report Type: Report from Study
  Country: BR (occurrence: BR)
  Receive Date: 20240320
  Receipt Date: 20240508
  Transmission Date: 20240716
  Serious: Yes (Hospitalization, Other)
  Sender: FDA-Public Use
  Company Number: BR-TAKEDA-2024TUS024473

PATIENT
  Sex: Female

DRUGS (9)
  1. HUMAN IMMUNOGLOBULIN G\HYALURONIDASE RECOMBINANT HUMAN [Suspect]
     Active Substance: HUMAN IMMUNOGLOBULIN G\HYALURONIDASE (HUMAN RECOMBINANT)
     Indication: Primary immunodeficiency syndrome
     Dosage: 1 DOSAGE FORM, Q4WEEKS
     Route: 058
     Dates: start: 2023
  2. HUMAN IMMUNOGLOBULIN G\HYALURONIDASE RECOMBINANT HUMAN [Suspect]
     Active Substance: HUMAN IMMUNOGLOBULIN G\HYALURONIDASE (HUMAN RECOMBINANT)
     Dosage: 200 MILLILITER, Q4WEEKS
     Route: 058
  3. HUMAN IMMUNOGLOBULIN G\HYALURONIDASE RECOMBINANT HUMAN [Suspect]
     Active Substance: HUMAN IMMUNOGLOBULIN G\HYALURONIDASE (HUMAN RECOMBINANT)
     Dosage: 400 MILLILITER, Q4WEEKS
     Route: 058
  4. VONOPRAZAN FUMARATE [Suspect]
     Active Substance: VONOPRAZAN FUMARATE
     Indication: Prophylaxis against gastrointestinal ulcer
     Dosage: 10 MILLIGRAM
     Route: 065
  5. SYNTHROID [Concomitant]
     Active Substance: LEVOTHYROXINE SODIUM
     Indication: Hypothyroidism
     Dosage: 100 MICROGRAM
     Route: 065
  6. PREGABALIN [Concomitant]
     Active Substance: PREGABALIN
     Indication: Pain
     Dosage: 150 MILLIGRAM
     Route: 065
  7. QUETIAPINE [Concomitant]
     Active Substance: QUETIAPINE
     Indication: Affective disorder
     Dosage: 100 MILLIGRAM
     Route: 065
  8. QUETIAPINE [Concomitant]
     Active Substance: QUETIAPINE
     Indication: Insomnia
  9. TRILEPTAL [Concomitant]
     Active Substance: OXCARBAZEPINE
     Indication: Paraesthesia
     Dosage: 300 MILLIGRAM
     Route: 065

REACTIONS (15)
  - Dengue haemorrhagic fever [Recovered/Resolved]
  - Pneumonia [Recovering/Resolving]
  - Gastrointestinal necrosis [Unknown]
  - Intestinal strangulation [Recovered/Resolved]
  - Volvulus [Unknown]
  - Oesophageal candidiasis [Unknown]
  - Ascites [Unknown]
  - Illness [Not Recovered/Not Resolved]
  - Dengue fever [Unknown]
  - Haemorrhage [Unknown]
  - Oral candidiasis [Unknown]
  - Pain [Unknown]
  - Nail candida [Unknown]
  - Swelling [Unknown]
  - Pruritus [Unknown]

NARRATIVE: CASE EVENT DATE: 20230101
